FAERS Safety Report 25573497 (Version 5)
Quarter: 2025Q4

REPORT INFORMATION
  Report Type: Spontaneous
  Country: US (occurrence: US)
  Receive Date: 20250717
  Receipt Date: 20251117
  Transmission Date: 20260118
  Serious: No
  Sender: PFIZER
  Company Number: US-PFIZER INC-202500061495

PATIENT
  Age: 8 Year
  Sex: Male
  Weight: 17.69 kg

DRUGS (2)
  1. GENOTROPIN [Suspect]
     Active Substance: SOMATROPIN
     Dosage: 0.8 MG
     Dates: start: 202503
  2. GENOTROPIN [Suspect]
     Active Substance: SOMATROPIN
     Dosage: 0.8 MG, DAILY
     Route: 058
     Dates: start: 20250612

REACTIONS (7)
  - Injection site mass [Unknown]
  - Injection site discolouration [Unknown]
  - Injection site pain [Unknown]
  - Device breakage [Unknown]
  - Drug dose omission by device [Unknown]
  - Product administered at inappropriate site [Unknown]
  - Needle issue [Unknown]

NARRATIVE: CASE EVENT DATE: 20250912
